FAERS Safety Report 7794157-2 (Version None)
Quarter: 2011Q4

REPORT INFORMATION
  Report Type: 
  Country: None (occurrence: None)
  Receive Date: 20111004
  Receipt Date: 20110928
  Transmission Date: 20120403
  Serious: Yes (Other)
  Sender: FDA-Public Use
  Company Number: FR-US-EMD SERONO, INC.-7085435

PATIENT
  Sex: Female

DRUGS (3)
  1. OROCAL [Concomitant]
     Indication: OSTEOPOROSIS
  2. VITAMIN D [Concomitant]
     Indication: OSTEOPOROSIS
  3. REBIF [Suspect]
     Indication: MULTIPLE SCLEROSIS
     Route: 058
     Dates: start: 19990801

REACTIONS (5)
  - HYPERTENSION [None]
  - INFLUENZA LIKE ILLNESS [None]
  - HYPERMETROPIA [None]
  - ASTIGMATISM [None]
  - ARTERIOSCLEROTIC RETINOPATHY [None]
